FAERS Safety Report 23635527 (Version 1)
Quarter: 2024Q1

REPORT INFORMATION
  Report Type: Spontaneous
  Country: CN (occurrence: None)
  Receive Date: 20240315
  Receipt Date: 20240315
  Transmission Date: 20240410
  Serious: Yes (Hospitalization, Other)
  Sender: FDA-Public Use
  Company Number: CN-ROCHE-3524099

PATIENT
  Age: 64 Year
  Sex: Female
  Weight: 62 kg

DRUGS (2)
  1. HERCEPTIN [Suspect]
     Active Substance: TRASTUZUMAB
     Indication: Invasive ductal breast carcinoma
     Route: 041
     Dates: start: 20240225
  2. DOCETAXEL [Suspect]
     Active Substance: DOCETAXEL\DOCETAXEL ANHYDROUS
     Indication: Invasive ductal breast carcinoma
     Route: 041
     Dates: start: 20240225

REACTIONS (7)
  - Myelosuppression [Recovering/Resolving]
  - Upper respiratory tract infection [Unknown]
  - Anaemia [Unknown]
  - Hepatic cirrhosis [Unknown]
  - Hypertension [Unknown]
  - Pulmonary mass [Unknown]
  - Headache [Unknown]

NARRATIVE: CASE EVENT DATE: 20240301
